FAERS Safety Report 6457733-5 (Version None)
Quarter: 2009Q4

REPORT INFORMATION
  Report Type: 
  Country: None (occurrence: None)
  Receive Date: 20091125
  Receipt Date: 20091123
  Transmission Date: 20100525
  Serious: Yes (Other)
  Sender: FDA-Public Use
  Company Number: US-BRISTOL-MYERS SQUIBB COMPANY-14868210

PATIENT
  Age: 72 Year
  Sex: Female
  Weight: 73 kg

DRUGS (3)
  1. CYTOXAN [Suspect]
     Indication: BREAST CANCER
     Dosage: DURATION OF THERAPY: 5YRS AGO
  2. ADRIAMYCIN PFS [Suspect]
     Indication: CHEMOTHERAPY
  3. LISINOPRIL [Concomitant]

REACTIONS (1)
  - ANOSMIA [None]
